FAERS Safety Report 15211221 (Version 1)
Quarter: 2018Q3

REPORT INFORMATION
  Report Type: Spontaneous
  Country: US (occurrence: US)
  Receive Date: 20180630
  Receipt Date: 20180630
  Transmission Date: 20181010
  Serious: Yes (Life-Threatening, Hospitalization)
  Sender: FDA-Public Use
  Company Number: None

PATIENT
  Age: 56 Year
  Sex: Male
  Weight: 85.5 kg

DRUGS (2)
  1. PROPAFENONE HCL [Suspect]
     Active Substance: PROPAFENONE HYDROCHLORIDE
     Indication: ATRIAL FIBRILLATION
     Dosage: ?          QUANTITY:2 TABLET(S);?
     Route: 048
     Dates: start: 20110624, end: 20111202
  2. ASPIRIN. [Concomitant]
     Active Substance: ASPIRIN

REACTIONS (4)
  - Syncope [None]
  - Arrhythmia [None]
  - Therapy change [None]
  - Confusional state [None]

NARRATIVE: CASE EVENT DATE: 20110805
